FAERS Safety Report 26126175 (Version 1)
Quarter: 2025Q4

REPORT INFORMATION
  Report Type: Spontaneous
  Country: US (occurrence: US)
  Receive Date: 20251205
  Receipt Date: 20251205
  Transmission Date: 20260117
  Serious: Yes (Hospitalization, Other)
  Sender: Haleon PLC
  Company Number: US-HALEON-2277620

PATIENT
  Age: 31 Year
  Sex: Male

DRUGS (1)
  1. CALCIUM CARBONATE [Suspect]
     Active Substance: CALCIUM CARBONATE
     Indication: Gastrooesophageal reflux disease

REACTIONS (11)
  - Hypokalaemia [Recovering/Resolving]
  - Alkalosis [Recovering/Resolving]
  - Tachycardia [Recovering/Resolving]
  - Metabolic alkalosis [Recovering/Resolving]
  - Hypochloraemia [Recovering/Resolving]
  - Vomiting [Recovering/Resolving]
  - Acute kidney injury [Recovered/Resolved]
  - Condition aggravated [Recovering/Resolving]
  - Renal impairment [Recovered/Resolved]
  - Muscle spasms [Recovering/Resolving]
  - Nausea [Recovering/Resolving]
